FAERS Safety Report 9611064 (Version 3)
Quarter: 2013Q4

REPORT INFORMATION
  Report Type: Spontaneous
  Country: US (occurrence: US)
  Receive Date: 20131009
  Receipt Date: 20131022
  Transmission Date: 20140711
  Serious: Yes (Death)
  Sender: FDA-Public Use
  Company Number: US-009507513-1307USA004630

PATIENT
  Age: 66 Year
  Sex: Male
  Weight: 95.24 kg

DRUGS (2)
  1. CORICIDIN HBP CHEST CONGESTION AND COUGH [Suspect]
     Indication: PNEUMONIA
     Dosage: UNK, UNKNOWN
     Route: 048
     Dates: start: 201207, end: 20130923
  2. COUMADIN [Suspect]
     Indication: PRODUCT USED FOR UNKNOWN INDICATION
     Dosage: UNK, UNKNOWN
     Route: 048

REACTIONS (3)
  - Death [Fatal]
  - Epistaxis [Unknown]
  - Off label use [Unknown]
